FAERS Safety Report 13891796 (Version 1)
Quarter: 2017Q3

REPORT INFORMATION
  Report Type: Spontaneous
  Country: US (occurrence: US)
  Receive Date: 20170822
  Receipt Date: 20170822
  Transmission Date: 20171127
  Serious: Yes (Other)
  Sender: FDA-Public Use
  Company Number: US-GILEAD-2017-0289008

PATIENT
  Age: 61 Year
  Sex: Male

DRUGS (1)
  1. TENOFOVIR DISOPROXIL FUMARATE. [Suspect]
     Active Substance: TENOFOVIR DISOPROXIL FUMARATE
     Indication: HIV INFECTION
     Route: 065

REACTIONS (5)
  - Hypophosphataemia [Recovered/Resolved]
  - Lower limb fracture [Recovered/Resolved]
  - Rib fracture [Recovered/Resolved]
  - Pelvic fracture [Recovered/Resolved]
  - Osteomalacia [Recovered/Resolved]
